FAERS Safety Report 18678686 (Version 2)
Quarter: 2021Q4

REPORT INFORMATION
  Report Type: Report from Study
  Country: US (occurrence: US)
  Receive Date: 20201229
  Receipt Date: 20211229
  Transmission Date: 20220303
  Serious: No
  Sender: FDA-Public Use
  Company Number: US-CLOVIS ONCOLOGY-CLO-2020-001108

PATIENT
  Sex: Female

DRUGS (3)
  1. RUBRACA [Suspect]
     Active Substance: RUCAPARIB CAMSYLATE
     Indication: Ovarian cancer
     Dosage: 600 MILLIGRAM, BID
     Route: 048
     Dates: start: 20200610
  2. ZOFRAN [Suspect]
     Active Substance: ONDANSETRON HYDROCHLORIDE
     Indication: Nausea
     Dosage: UNK
  3. LISINOPRIL [Concomitant]
     Active Substance: LISINOPRIL
     Indication: Product used for unknown indication

REACTIONS (28)
  - Joint swelling [Recovering/Resolving]
  - Fluid retention [Unknown]
  - Lacrimation increased [Not Recovered/Not Resolved]
  - Eosinophil count abnormal [Unknown]
  - Blood bilirubin increased [Not Recovered/Not Resolved]
  - Blood chloride increased [Unknown]
  - Blood sodium increased [Unknown]
  - Blood urea increased [Unknown]
  - Hyperkeratosis [Recovered/Resolved]
  - Gastroenteritis viral [Unknown]
  - Renal function test abnormal [Recovered/Resolved]
  - Proteinuria [Unknown]
  - Haemoglobin increased [Recovered/Resolved]
  - Headache [Recovered/Resolved]
  - Headache [Not Recovered/Not Resolved]
  - Constipation [Recovering/Resolving]
  - Rhinorrhoea [Not Recovered/Not Resolved]
  - Nausea [Recovered/Resolved]
  - Nausea [Not Recovered/Not Resolved]
  - Fatigue [Not Recovered/Not Resolved]
  - Asthenia [Not Recovered/Not Resolved]
  - Lethargy [Not Recovered/Not Resolved]
  - Aspartate aminotransferase increased [Recovered/Resolved]
  - Alanine aminotransferase increased [Recovered/Resolved]
  - Diarrhoea [Unknown]
  - Malaise [Recovered/Resolved]
  - Blood creatinine increased [Unknown]
  - Product dose omission issue [Unknown]

NARRATIVE: CASE EVENT DATE: 20200101
